FAERS Safety Report 6804083-0 (Version None)
Quarter: 2010Q2

REPORT INFORMATION
  Report Type: 
  Country: None (occurrence: None)
  Receive Date: 20100628
  Receipt Date: 20061122
  Transmission Date: 20101027
  Serious: Yes (Other)
  Sender: FDA-Public Use
  Company Number: US-PFIZER INC-2006137616

PATIENT
  Sex: Female
  Weight: 90.72 kg

DRUGS (1)
  1. SUTENT [Suspect]
     Indication: RENAL CANCER
     Dates: start: 20060601

REACTIONS (2)
  - ANAEMIA [None]
  - DRUG INEFFECTIVE [None]
